FAERS Safety Report 12712667 (Version 1)
Quarter: 2016Q3

REPORT INFORMATION
  Report Type: Spontaneous
  Country: CN (occurrence: CN)
  Receive Date: 20160902
  Receipt Date: 20160902
  Transmission Date: 20161109
  Serious: Yes (Hospitalization, Other)
  Sender: FDA-Public Use
  Company Number: CN-PFIZER INC-2016403560

PATIENT
  Age: 56 Year
  Sex: Female
  Weight: 55 kg

DRUGS (5)
  1. KELIN^AO [Concomitant]
     Dosage: 320 MG, 1X/DAY
     Route: 041
     Dates: start: 20160520, end: 20160520
  2. PLAVIX [Concomitant]
     Active Substance: CLOPIDOGREL BISULFATE
     Indication: THROMBOSIS PROPHYLAXIS
     Dosage: 25 MG, 1X/DAY
     Route: 048
     Dates: start: 20160520, end: 20160524
  3. LIPITOR [Suspect]
     Active Substance: ATORVASTATIN CALCIUM
     Indication: HYPERLIPIDAEMIA
     Dosage: 10 MG, 1X/DAY
     Route: 048
     Dates: start: 20120501, end: 20160519
  4. APROVEL [Concomitant]
     Active Substance: IRBESARTAN
     Indication: ESSENTIAL HYPERTENSION
     Dosage: 150 MG, 1X/DAY
     Route: 048
     Dates: start: 20160520, end: 20160530
  5. XUEZHIKANG [Suspect]
     Active Substance: RED YEAST
     Indication: HYPERLIPIDAEMIA
     Dosage: 0.6 G, 2X/DAY
     Route: 048
     Dates: start: 20160519, end: 20160523

REACTIONS (6)
  - Dizziness [Recovered/Resolved]
  - Blood creatine phosphokinase increased [Recovered/Resolved]
  - Fatigue [Recovered/Resolved]
  - Myalgia [Recovered/Resolved]
  - Chest discomfort [Recovered/Resolved]
  - Blood creatine phosphokinase MB increased [Recovered/Resolved]

NARRATIVE: CASE EVENT DATE: 201605
